FAERS Safety Report 14846457 (Version 1)
Quarter: 2018Q2

REPORT INFORMATION
  Report Type: Report from Study
  Country: US (occurrence: US)
  Receive Date: 20180504
  Receipt Date: 20180504
  Transmission Date: 20180711
  Serious: Yes (Hospitalization, Other)
  Sender: FDA-Public Use
  Company Number: US-TEVA-2018-US-888278

PATIENT
  Age: 68 Year
  Sex: Female

DRUGS (2)
  1. COPAXONE [Suspect]
     Active Substance: GLATIRAMER ACETATE
     Route: 058
     Dates: start: 20090107, end: 20091113
  2. COPAXONE [Suspect]
     Active Substance: GLATIRAMER ACETATE
     Indication: MULTIPLE SCLEROSIS
     Route: 058
     Dates: start: 20150311

REACTIONS (4)
  - Musculoskeletal stiffness [Recovering/Resolving]
  - Vomiting [Recovering/Resolving]
  - Urinary incontinence [Recovering/Resolving]
  - Eye discharge [Recovering/Resolving]

NARRATIVE: CASE EVENT DATE: 20180421
